FAERS Safety Report 22657358 (Version 1)
Quarter: 2023Q2

REPORT INFORMATION
  Report Type: Report from Study
  Country: IT (occurrence: IT)
  Receive Date: 20230630
  Receipt Date: 20230630
  Transmission Date: 20230722
  Serious: Yes (Hospitalization)
  Sender: FDA-Public Use
  Company Number: IT-EXELIXIS-XL18423065336

PATIENT

DRUGS (28)
  1. CABOZANTINIB [Suspect]
     Active Substance: CABOZANTINIB
     Indication: Metastatic renal cell carcinoma
     Dosage: 60 MG, QD
     Route: 048
     Dates: start: 20201120
  2. ATEZOLIZUMAB [Suspect]
     Active Substance: ATEZOLIZUMAB
     Indication: Metastatic renal cell carcinoma
     Dosage: UNK
  3. ACETAMINOPHEN [Concomitant]
     Active Substance: ACETAMINOPHEN
     Indication: Bone pain
     Dosage: 1 G, 1 IN 1 AS REQUIRED
     Route: 048
     Dates: start: 20201116
  4. ACETAMINOPHEN [Concomitant]
     Active Substance: ACETAMINOPHEN
     Indication: Paraesthesia
     Dosage: 1 G, 1 IN 1 AS REQUIRED
     Route: 048
     Dates: start: 20211210
  5. Clin 4000 [Concomitant]
     Indication: Constipation
     Dosage: DOSE: 1 OTHER, QD
     Route: 048
     Dates: start: 20201123
  6. NALOXONE HYDROCHLORIDE\OXYCODONE HYDROCHLORIDE [Concomitant]
     Active Substance: NALOXONE HYDROCHLORIDE\OXYCODONE HYDROCHLORIDE
     Indication: Arthralgia
     Dosage: 20 MG, QD
     Route: 048
     Dates: start: 20201127
  7. IMODIUM [Concomitant]
     Active Substance: LOPERAMIDE HYDROCHLORIDE
     Indication: Diarrhoea
     Dosage: 1 IN 1 AS REQUIRED
     Route: 048
     Dates: start: 20210324
  8. CETIRIZINE HYDROCHLORIDE [Concomitant]
     Active Substance: CETIRIZINE HYDROCHLORIDE
     Indication: Erythema
     Dosage: DOSE: 1 TAB, QD
     Dates: start: 20210324
  9. DOXYCYCLINE [Concomitant]
     Active Substance: DOXYCYCLINE
     Indication: Erythema
     Dosage: 100 MG, QD
     Route: 048
     Dates: start: 20210408
  10. SENSIFINE AR [Concomitant]
  11. SENSIFINE P22 [Concomitant]
  12. CLINDAMYCIN HYDROCHLORIDE [Concomitant]
     Active Substance: CLINDAMYCIN HYDROCHLORIDE
     Dosage: UNK, BID
     Route: 061
     Dates: start: 202301
  13. DEXAMETHASONE [Concomitant]
     Active Substance: DEXAMETHASONE
     Indication: Vomiting
     Dosage: 20 GTT
     Route: 048
     Dates: start: 20230417, end: 20230604
  14. NALOXONE HYDROCHLORIDE\OXYCODONE HYDROCHLORIDE [Concomitant]
     Active Substance: NALOXONE HYDROCHLORIDE\OXYCODONE HYDROCHLORIDE
     Indication: Abdominal pain
     Dosage: 15 MG, TID
     Route: 048
     Dates: start: 20220820
  15. LATTULAC [Concomitant]
     Indication: Constipation
     Dosage: DOSE: 1 TBSP, BID
     Route: 048
     Dates: start: 20220818
  16. TACHIPIRINA [Concomitant]
     Active Substance: ACETAMINOPHEN
     Indication: Pyrexia
     Dosage: DOSE: OTHER, 1000 MG, 1 IN 1 AS REQUIRED
     Route: 048
     Dates: start: 20220812
  17. TACHIPIRINA [Concomitant]
     Active Substance: ACETAMINOPHEN
     Indication: Pain
  18. REV US30 [Concomitant]
     Indication: Dermatitis
     Dosage: DOSE: 1 OTHER, 1 IN 1 AS REQUIRED
     Route: 061
     Dates: start: 20220404
  19. PERFALGAN [Concomitant]
     Active Substance: ACETAMINOPHEN
     Indication: Abdominal pain
     Dosage: DOSE: 1 AMPOULE, 1 IN 1 AS REQUIRED
     Route: 042
     Dates: start: 20220812
  20. LYRICA [Concomitant]
     Active Substance: PREGABALIN
     Indication: Anxiety
     Dosage: 75 MG, 1 IN 1 AS REQUIRED
     Route: 048
     Dates: start: 20220812
  21. LACTITOL [Concomitant]
     Active Substance: LACTITOL
     Indication: Constipation
     Dosage: DOSE: 1, BID
     Route: 048
     Dates: start: 20220812
  22. PANTOPRAZOLE SODIUM [Concomitant]
     Active Substance: PANTOPRAZOLE SODIUM
     Dosage: 40 MG, BID
     Route: 048
     Dates: start: 20220812
  23. LEVOTHYROXINE SODIUM [Concomitant]
     Active Substance: LEVOTHYROXINE SODIUM
     Indication: Hypothyroidism
     Dosage: 50 UG, QD
     Route: 048
     Dates: start: 20210830
  24. ACETAMINOPHEN\CODEINE PHOSPHATE [Concomitant]
     Active Substance: ACETAMINOPHEN\CODEINE PHOSPHATE
     Indication: Pain in jaw
  25. ACETAMINOPHEN\CODEINE PHOSPHATE [Concomitant]
     Active Substance: ACETAMINOPHEN\CODEINE PHOSPHATE
     Indication: Arthralgia
  26. ACETAMINOPHEN\CODEINE PHOSPHATE [Concomitant]
     Active Substance: ACETAMINOPHEN\CODEINE PHOSPHATE
     Indication: Arthralgia
  27. SAVEL CLEANSING MILK [Concomitant]
  28. METOCLOPRAMIDE HYDROCHLORIDE [Concomitant]
     Active Substance: METOCLOPRAMIDE HYDROCHLORIDE
     Indication: Nausea
     Dosage: DOSE: 1 OTHER
     Route: 065
     Dates: start: 202306

REACTIONS (1)
  - Therapeutic embolisation [Recovered/Resolved]

NARRATIVE: CASE EVENT DATE: 20230531
